FAERS Safety Report 10170983 (Version 16)
Quarter: 2015Q2

REPORT INFORMATION
  Report Type: Report from Study
  Country: GB (occurrence: GB)
  Receive Date: 20140514
  Receipt Date: 20150428
  Transmission Date: 20150821
  Serious: Yes (Hospitalization, Disabling, Other)
  Sender: FDA-Public Use
  Company Number: GB-ALEXION PHARMACEUTICALS INC.-A201400838

PATIENT

DRUGS (14)
  1. SOLIRIS [Suspect]
     Active Substance: ECULIZUMAB
     Dosage: 900 MG, Q2W
     Route: 042
     Dates: start: 20120813
  2. EPREX [Concomitant]
     Active Substance: ERYTHROPOIETIN
     Indication: PRODUCT USED FOR UNKNOWN INDICATION
     Route: 065
  3. CETRIZINE [Concomitant]
     Active Substance: CETIRIZINE HYDROCHLORIDE
     Indication: PRODUCT USED FOR UNKNOWN INDICATION
     Route: 065
  4. EXJADE [Concomitant]
     Active Substance: DEFERASIROX
     Indication: PRODUCT USED FOR UNKNOWN INDICATION
     Route: 065
  5. OXYTETRACYCLINE [Concomitant]
     Active Substance: OXYTETRACYCLINE
     Indication: INFECTION
     Dosage: 250 MG, QID
     Route: 048
     Dates: start: 201407, end: 20140721
  6. SOLIRIS [Suspect]
     Active Substance: ECULIZUMAB
     Dosage: 900 MG, Q2W
     Route: 042
     Dates: start: 20120813
  7. SOLIRIS [Suspect]
     Active Substance: ECULIZUMAB
     Dosage: 900 MG, Q2W
     Route: 042
     Dates: start: 20140813
  8. SOLIRIS [Suspect]
     Active Substance: ECULIZUMAB
     Dosage: 900 MG, Q2W
     Route: 042
     Dates: start: 20120813
  9. SOLIRIS [Suspect]
     Active Substance: ECULIZUMAB
     Dosage: 900 MG, Q2W
     Route: 042
     Dates: start: 20120627
  10. SOLIRIS [Suspect]
     Active Substance: ECULIZUMAB
     Dosage: 900 MG, Q2W
     Route: 042
     Dates: start: 20120813
  11. SOLIRIS [Suspect]
     Active Substance: ECULIZUMAB
     Dosage: 900 MG, Q2W
     Route: 042
  12. TEGRETOL [Concomitant]
     Active Substance: CARBAMAZEPINE
     Indication: PRODUCT USED FOR UNKNOWN INDICATION
     Route: 065
  13. LEVOTHYROXINE [Concomitant]
     Active Substance: LEVOTHYROXINE
     Indication: PRODUCT USED FOR UNKNOWN INDICATION
     Route: 065
  14. SOLIRIS [Suspect]
     Active Substance: ECULIZUMAB
     Indication: PAROXYSMAL NOCTURNAL HAEMOGLOBINURIA
     Dosage: 900 MG, Q2W
     Route: 042
     Dates: start: 20080822

REACTIONS (41)
  - Anaemia [Unknown]
  - Urinary tract infection [Recovered/Resolved]
  - Dyspnoea exertional [Not Recovered/Not Resolved]
  - Anaemia [Not Recovered/Not Resolved]
  - Abdominal pain [Unknown]
  - Transfusion [Unknown]
  - Dyspnoea exertional [Not Recovered/Not Resolved]
  - Fatigue [Not Recovered/Not Resolved]
  - Fall [Unknown]
  - Fatigue [Not Recovered/Not Resolved]
  - Chromaturia [Unknown]
  - Tinnitus [Recovering/Resolving]
  - Oropharyngeal pain [Unknown]
  - Fatigue [Not Recovered/Not Resolved]
  - Back pain [Not Recovered/Not Resolved]
  - Disturbance in attention [Unknown]
  - Chromaturia [Unknown]
  - Gait disturbance [Unknown]
  - Contusion [Unknown]
  - Urinary tract infection [Not Recovered/Not Resolved]
  - Urinary tract infection [Unknown]
  - Anaemia [Unknown]
  - Muscle tightness [Not Recovered/Not Resolved]
  - Lethargy [Unknown]
  - Lethargy [Not Recovered/Not Resolved]
  - Abdominal pain [Not Recovered/Not Resolved]
  - Asthenia [Unknown]
  - Blood urine present [Unknown]
  - Haemolysis [Recovered/Resolved]
  - Fall [Recovered/Resolved]
  - Dysphagia [Not Recovered/Not Resolved]
  - Contusion [Unknown]
  - Back pain [Recovered/Resolved]
  - Dyspnoea exertional [Unknown]
  - Anaemia [Recovered/Resolved]
  - Feeling abnormal [Unknown]
  - Dysphagia [Not Recovered/Not Resolved]
  - Transfusion [Unknown]
  - Deafness [Recovered/Resolved]
  - Ear pain [Recovered/Resolved with Sequelae]
  - Dizziness [Unknown]

NARRATIVE: CASE EVENT DATE: 20140421
